FAERS Safety Report 17562923 (Version 1)
Quarter: 2020Q1

REPORT INFORMATION
  Report Type: Spontaneous
  Country: HU (occurrence: HU)
  Receive Date: 20200319
  Receipt Date: 20200319
  Transmission Date: 20200409
  Serious: Yes (Hospitalization)
  Sender: FDA-Public Use
  Company Number: HU-B.I. PHARMACEUTICALS,INC./RIDGEFIELD-2020-BI-013894

PATIENT
  Age: 77 Year

DRUGS (1)
  1. OFEV [Suspect]
     Active Substance: NINTEDANIB
     Indication: INTERSTITIAL LUNG DISEASE
     Route: 065
     Dates: start: 20160123, end: 20160329

REACTIONS (4)
  - Large intestine perforation [Unknown]
  - Diarrhoea [Unknown]
  - Wound [Unknown]
  - Colonic abscess [Unknown]

NARRATIVE: CASE EVENT DATE: 2016
